FAERS Safety Report 7369698-2 (Version None)
Quarter: 2011Q1

REPORT INFORMATION
  Report Type: 
  Country: None (occurrence: None)
  Receive Date: 20110323
  Receipt Date: 20080828
  Transmission Date: 20110831
  Serious: Yes (Other)
  Sender: FDA-Public Use
  Company Number: US-BAYER-201031090NA

PATIENT
  Sex: Male
  Weight: 95.238 kg

DRUGS (12)
  1. TRASYLOL [Suspect]
     Indication: CARDIAC OPERATION
  2. RED BLOOD CELLS [Concomitant]
     Indication: TRICUSPID VALVE REPAIR
  3. HEPARIN [Concomitant]
     Indication: AORTIC VALVE REPLACEMENT
     Dosage: UNK
     Route: 042
     Dates: start: 20041011
  4. FRESH FROZEN PLASMA [Concomitant]
     Indication: TRICUSPID VALVE REPAIR
  5. PENICILLIN G [Concomitant]
     Indication: PNEUMOCOCCAL BACTERAEMIA
     Route: 042
  6. HEPARIN [Concomitant]
     Indication: TRICUSPID VALVE REPAIR
  7. GENTAMICIN [Concomitant]
     Indication: PNEUMOCOCCAL BACTERAEMIA
     Route: 042
  8. FRESH FROZEN PLASMA [Concomitant]
     Indication: AORTIC VALVE REPLACEMENT
  9. TRASYLOL [Suspect]
     Indication: TRICUSPID VALVE REPAIR
  10. RED BLOOD CELLS [Concomitant]
     Indication: AORTIC VALVE REPLACEMENT
     Dosage: 4 UNITS
     Dates: start: 20041011
  11. ASPIRIN [Concomitant]
     Dosage: 81 MG, UNK
     Route: 048
  12. TRASYLOL [Suspect]
     Indication: AORTIC VALVE REPLACEMENT
     Dosage: 200ML , FOLLOWED BY 50ML /HR; PER PERFUSION RECORD 800 (UNITS NOT
     Dates: start: 20041011, end: 20041011

REACTIONS (11)
  - MULTI-ORGAN FAILURE [None]
  - RENAL IMPAIRMENT [None]
  - STRESS [None]
  - ARTERIAL RUPTURE [None]
  - RENAL INJURY [None]
  - UNEVALUABLE EVENT [None]
  - FEAR [None]
  - PAIN [None]
  - RENAL FAILURE [None]
  - EMOTIONAL DISTRESS [None]
  - ANXIETY [None]
